FAERS Safety Report 18962316 (Version 1)
Quarter: 2021Q1

REPORT INFORMATION
  Report Type: Spontaneous
  Country: US (occurrence: US)
  Receive Date: 20210302
  Receipt Date: 20210302
  Transmission Date: 20210420
  Serious: Yes (Hospitalization, Other)
  Sender: FDA-Public Use
  Company Number: None

PATIENT
  Age: 35 Year
  Sex: Female
  Weight: 88 kg

DRUGS (6)
  1. JARDIANCE [Suspect]
     Active Substance: EMPAGLIFLOZIN
     Indication: TYPE 1 DIABETES MELLITUS
     Route: 048
     Dates: start: 20201113
  2. NOVOLOG 100 U/ML VIAL [Concomitant]
  3. OMEPRAZOLE DR 20 MG [Concomitant]
     Active Substance: OMEPRAZOLE
  4. LEVOTHYROXINE 150 MCG [Concomitant]
  5. FLONASE 50 MCG/ACT [Concomitant]
  6. TOPAMAX 25 MG [Concomitant]

REACTIONS (2)
  - Euglycaemic diabetic ketoacidosis [None]
  - Off label use [None]

NARRATIVE: CASE EVENT DATE: 20210302
